FAERS Safety Report 4621952-0 (Version None)
Quarter: 2005Q1

REPORT INFORMATION
  Report Type: 
  Country: None (occurrence: None)
  Receive Date: 20050329
  Receipt Date: 20030718
  Transmission Date: 20050727
  Serious: Yes (Death, Other)
  Sender: FDA-Public Use
  Company Number: PHFR2003GB05034

PATIENT
  Age: 8 Year
  Sex: Male

DRUGS (1)
  1. ELIDEL [Suspect]
     Route: 061

REACTIONS (3)
  - BRONCHOPNEUMONIA [None]
  - IMMUNE SYSTEM DISORDER [None]
  - SEPSIS [None]
